FAERS Safety Report 4954670-X (Version None)
Quarter: 2006Q1

REPORT INFORMATION
  Report Type: 
  Country: None (occurrence: None)
  Receive Date: 20060322
  Receipt Date: 20060316
  Transmission Date: 20060701
  Serious: Yes (Hospitalization, Other)
  Sender: FDA-Public Use
  Company Number: 200610059BVD

PATIENT
  Age: 69 Year
  Sex: Male
  Weight: 92 kg

DRUGS (5)
  1. SORAFENIB [Suspect]
     Indication: METASTATIC RENAL CELL CARCINOMA
     Dosage: 400 MG, BID, ORAL
     Route: 048
     Dates: start: 20050521
  2. PLACEBO TO SORAFENIB (PLACEBO) [Suspect]
     Dosage: ORAL
     Route: 048
     Dates: start: 20041207, end: 20050401
  3. IMODIUM [Concomitant]
  4. PERENTEROL [Concomitant]
  5. MARCUMAR [Concomitant]

REACTIONS (1)
  - ATRIAL THROMBOSIS [None]
